FAERS Safety Report 11689019 (Version 1)
Quarter: 2015Q4

REPORT INFORMATION
  Report Type: Spontaneous
  Country: US (occurrence: US)
  Receive Date: 20151102
  Receipt Date: 20151102
  Transmission Date: 20160304
  Serious: No
  Sender: FDA-Public Use
  Company Number: US-009507513-1510USA009496

PATIENT
  Sex: Female
  Weight: 72.56 kg

DRUGS (2)
  1. IMPLANON [Suspect]
     Active Substance: ETONOGESTREL
     Indication: CONTRACEPTION
     Dosage: 1 IMPLANT, 3 YEARS,IN LEFT ARM
     Dates: start: 2014, end: 20151016
  2. IMPLANON [Suspect]
     Active Substance: ETONOGESTREL
     Indication: PAIN

REACTIONS (6)
  - Device breakage [Recovered/Resolved]
  - Treatment noncompliance [Not Recovered/Not Resolved]
  - Device difficult to use [Recovered/Resolved]
  - Haemorrhage [Not Recovered/Not Resolved]
  - Device difficult to use [Recovered/Resolved]
  - Muscle spasms [Not Recovered/Not Resolved]
